FAERS Safety Report 17630187 (Version 1)
Quarter: 2020Q2

REPORT INFORMATION
  Report Type: Spontaneous
  Country: US (occurrence: US)
  Receive Date: 20200403
  Receipt Date: 20200403
  Transmission Date: 20200713
  Serious: Yes (Life-Threatening, Disabling, Other)
  Sender: FDA-Public Use
  Company Number: None

PATIENT
  Age: 70 Year
  Sex: Male
  Weight: 75.15 kg

DRUGS (5)
  1. FLUTICASONE NASAL [Concomitant]
     Active Substance: FLUTICASONE
  2. MONTELUKAST [Concomitant]
     Active Substance: MONTELUKAST SODIUM
  3. CIPROFLOXCIN 500 MG TAB DR.R GENERIC FOR CIPRO BAYE [Suspect]
     Active Substance: CIPROFLOXACIN
     Indication: PROSTATITIS
     Dosage: ?          QUANTITY:1 TABLET(S);?
     Route: 048
     Dates: start: 20191221, end: 20191223
  4. PATOPRAZOLE GENERIC FOR PROTONIX 40MG ORAL TABLET [Concomitant]
  5. TAMSULOSIN [Concomitant]
     Active Substance: TAMSULOSIN

REACTIONS (14)
  - Prostatitis [None]
  - Balance disorder [None]
  - Gastrooesophageal reflux disease [None]
  - Joint stiffness [None]
  - Gait disturbance [None]
  - Dyspepsia [None]
  - Diplopia [None]
  - Pain [None]
  - Vision blurred [None]
  - Anxiety [None]
  - Dizziness [None]
  - Chest discomfort [None]
  - Malaise [None]
  - Paraesthesia [None]

NARRATIVE: CASE EVENT DATE: 20191223
